FAERS Safety Report 22187774 (Version 1)
Quarter: 2023Q2

REPORT INFORMATION
  Report Type: Spontaneous
  Country: SE (occurrence: SE)
  Receive Date: 20230408
  Receipt Date: 20230408
  Transmission Date: 20230722
  Serious: Yes (Life-Threatening, Other)
  Sender: FDA-Public Use
  Company Number: SE-TEVA-2023-SE-2873058

PATIENT
  Age: 42 Year
  Sex: Female

DRUGS (1)
  1. QUETIAPINE [Suspect]
     Active Substance: QUETIAPINE
     Indication: Product used for unknown indication
     Route: 048
     Dates: end: 20200901

REACTIONS (18)
  - Intestinal pseudo-obstruction [Unknown]
  - Substance dependence [Unknown]
  - Corneal perforation [Unknown]
  - Withdrawal syndrome [Unknown]
  - Suicidal ideation [Unknown]
  - Sleep terror [Unknown]
  - Asphyxia [Unknown]
  - Dystonia [Unknown]
  - Pain [Unknown]
  - Influenza [Unknown]
  - Aptyalism [Unknown]
  - Nasal congestion [Unknown]
  - Fatigue [Unknown]
  - Memory impairment [Unknown]
  - Anxiety [Unknown]
  - Insomnia [Unknown]
  - Nightmare [Unknown]
  - Post-traumatic stress disorder [Unknown]

NARRATIVE: CASE EVENT DATE: 20120914
